FAERS Safety Report 10370199 (Version 1)
Quarter: 2014Q1

REPORT INFORMATION
  Report Type: Spontaneous
  Country: US (occurrence: None)
  Receive Date: 20140306
  Receipt Date: 20140306
  Transmission Date: 20141002
  Serious: Yes (Hospitalization)
  Sender: FDA-Public Use
  Company Number: 163-21880-13071416

PATIENT
  Age: 70 Year
  Sex: Female
  Weight: 56.8 kg

DRUGS (15)
  1. REVLIMID [Suspect]
     Indication: PLASMA CELL MYELOMA
     Dosage: 10 MG, 21 IN 28 D, PO
     Route: 048
     Dates: start: 20130412, end: 20130709
  2. ACYCLOVIR (ACICLOVIR) (OINTMENT) [Concomitant]
  3. AMLODIPINE (TABLETS) [Concomitant]
  4. BABY ASPIRIN (ACETYLSALICYLIC ACID) (TABLETS) [Concomitant]
  5. BETAMETHASONE DIPROPIONATE (AEROSOL FOR INHALATION) [Concomitant]
  6. CASANTHRANOL-DOCUSATE SODIUM (PERI-COLACE) (TABLETS) [Concomitant]
  7. CYCLOBENZAPRINE (TABLETS) [Concomitant]
  8. DEXAMETHASONE (TABLETS) [Concomitant]
  9. HYDROCODONE/ACETAMINOPHEN (REMEDEINE) (TABLETS) [Concomitant]
  10. LOVASTATIN (TABLETS) [Concomitant]
  11. OMEPRAZOLE (CAPSULES) [Concomitant]
  12. ONDANSETRON HCL (ONDANSETRON HYDROCHLORIDE) (TABLETS) [Concomitant]
  13. PAMIDRONATE (PAMIDRONATE DISODIUM) (INJECTION) [Concomitant]
  14. PROCHLORPERAZINE MALEATE (TABLETS) [Concomitant]
  15. ZOLPIDEM (TABLETS) [Concomitant]

REACTIONS (1)
  - Muscle spasms [None]
